FAERS Safety Report 6927059-1 (Version None)
Quarter: 2010Q3

REPORT INFORMATION
  Report Type: 
  Country: None (occurrence: None)
  Receive Date: 20100816
  Receipt Date: 20100723
  Transmission Date: 20110219
  Serious: No
  Sender: FDA-Public Use
  Company Number: US-ABBOTT-10P-163-0659552-00

PATIENT
  Sex: Female
  Weight: 90.8 kg

DRUGS (1)
  1. SIMCOR 500MG/40MG [Suspect]
     Indication: LOW DENSITY LIPOPROTEIN INCREASED
     Dosage: 500/20MG
     Dates: start: 20100709

REACTIONS (1)
  - FLUSHING [None]
